FAERS Safety Report 15829825 (Version 1)
Quarter: 2019Q1

REPORT INFORMATION
  Report Type: Spontaneous
  Country: US (occurrence: US)
  Receive Date: 20190115
  Receipt Date: 20190115
  Transmission Date: 20190417
  Serious: No
  Sender: FDA-Public Use
  Company Number: US-PERRIGO-18US013684

PATIENT
  Age: 21 Year
  Sex: Female
  Weight: 46.71 kg

DRUGS (1)
  1. TRETINOIN. [Suspect]
     Active Substance: TRETINOIN
     Indication: ACNE CYSTIC
     Dosage: 1 APPLICATION, NIGHTLY
     Route: 061
     Dates: start: 201810, end: 20181125

REACTIONS (2)
  - Application site erythema [Not Recovered/Not Resolved]
  - Application site acne [Not Recovered/Not Resolved]

NARRATIVE: CASE EVENT DATE: 201811
